FAERS Safety Report 13872508 (Version 1)
Quarter: 2017Q3

REPORT INFORMATION
  Report Type: Report from Study
  Country: DE (occurrence: DE)
  Receive Date: 20170816
  Receipt Date: 20170816
  Transmission Date: 20171127
  Serious: Yes (Congenital Anomaly, Other)
  Sender: FDA-Public Use
  Company Number: DE-MYLANLABS-2017M1050290

PATIENT

DRUGS (4)
  1. METHYLDOPA. [Suspect]
     Active Substance: METHYLDOPA
     Indication: HYPERTENSION
     Route: 064
  2. METFORMIN [Concomitant]
     Active Substance: METFORMIN HYDROCHLORIDE
     Indication: TYPE 2 DIABETES MELLITUS
     Dosage: RECEIVED FROM 0-9 WEEK OF GESTATION
     Route: 064
  3. ROSIGLITAZONE [Concomitant]
     Active Substance: ROSIGLITAZONE
     Indication: TYPE 2 DIABETES MELLITUS
     Dosage: RECEIVED FROM 0-9 WEEK OF GESTATION
     Route: 064
  4. INSULIN [Concomitant]
     Active Substance: INSULIN NOS
     Indication: TYPE 2 DIABETES MELLITUS
     Dosage: RECEIVED FROM 9-36+6 WEEK OF GESTATION
     Route: 064

REACTIONS (2)
  - Foetal exposure during pregnancy [Unknown]
  - Atrial septal defect [Unknown]
